FAERS Safety Report 6036030-6 (Version None)
Quarter: 2009Q1

REPORT INFORMATION
  Report Type: 
  Country: None (occurrence: None)
  Receive Date: 20090113
  Receipt Date: 20090106
  Transmission Date: 20090719
  Serious: Yes (Other)
  Sender: FDA-Public Use
  Company Number: US-BAXTER-2009BH000563

PATIENT
  Sex: Male

DRUGS (4)
  1. METRONIDAZOLE [Suspect]
     Indication: PROPHYLAXIS
  2. MORPHINE [Concomitant]
     Indication: DRUG USE FOR UNKNOWN INDICATION
     Route: 042
  3. AMPICILLIN [Concomitant]
     Indication: DRUG USE FOR UNKNOWN INDICATION
  4. GENTAMICIN [Concomitant]
     Indication: DRUG USE FOR UNKNOWN INDICATION

REACTIONS (2)
  - ENCEPHALOPATHY [None]
  - RESPIRATORY DISTRESS [None]
